FAERS Safety Report 8430249-2 (Version None)
Quarter: 2012Q2

REPORT INFORMATION
  Report Type: 
  Country: None (occurrence: None)
  Receive Date: 20120612
  Receipt Date: 20120530
  Transmission Date: 20120825
  Serious: Yes (Hospitalization)
  Sender: FDA-Public Use
  Company Number: NL-CELGENEUS-114-20785-12020401

PATIENT
  Sex: Female

DRUGS (11)
  1. THALIDOMIDE [Suspect]
     Indication: MULTIPLE MYELOMA
     Dosage: 100 MILLIGRAM
     Route: 048
     Dates: start: 20120119, end: 20120129
  2. PANTOPRAZOLE [Concomitant]
     Route: 048
  3. THALIDOMIDE [Suspect]
     Route: 048
     Dates: start: 20120207
  4. PREDNISONE [Suspect]
     Indication: MULTIPLE MYELOMA
     Dosage: 160 MILLIGRAM
     Route: 048
     Dates: start: 20120119, end: 20120122
  5. CARBASALAAT CALCIUM [Concomitant]
     Route: 048
  6. OXYCONTIN [Concomitant]
     Route: 048
  7. OXYNORM [Concomitant]
     Route: 048
     Dates: start: 20111206
  8. SIMVASTATIN [Concomitant]
     Route: 048
     Dates: start: 20111027
  9. MELPHALAN HYDROCHLORIDE [Suspect]
     Indication: MULTIPLE MYELOMA
     Dosage: 14 MILLIGRAM
     Route: 048
     Dates: start: 20120119, end: 20120122
  10. ACETAMINOPHEN [Concomitant]
     Indication: PAIN
     Route: 048
  11. DICLOFENAC SODIUM [Concomitant]
     Indication: PAIN
     Route: 048
     Dates: start: 20111202

REACTIONS (2)
  - ANAEMIA [None]
  - URINARY TRACT INFECTION [None]
